FAERS Safety Report 5832621-3 (Version None)
Quarter: 2008Q3

REPORT INFORMATION
  Report Type: 
  Country: None (occurrence: None)
  Receive Date: 20080804
  Receipt Date: 20080724
  Transmission Date: 20090109
  Serious: Yes (Other)
  Sender: FDA-Public Use
  Company Number: US-JNJCH-2008019421

PATIENT
  Age: 50 Year
  Sex: Male
  Weight: 90.7 kg

DRUGS (2)
  1. VISINE-A [Suspect]
     Indication: HYPERSENSITIVITY
     Dosage: TEXT:1 OR 2 DROPS IN EACH EYE ONCE A DAY
     Route: 047
     Dates: start: 20080722, end: 20080722
  2. ANTIHYPERTENSIVES [Concomitant]
     Indication: HYPERTENSION
     Dosage: TEXT:UNSPECIFED, ONCE A DAY
     Route: 065

REACTIONS (2)
  - APPLICATION SITE BURN [None]
  - VISION BLURRED [None]
